FAERS Safety Report 16527261 (Version 1)
Quarter: 2019Q3

REPORT INFORMATION
  Report Type: Spontaneous
  Country: US (occurrence: US)
  Receive Date: 20190523
  Receipt Date: 20190523
  Transmission Date: 20191004
  Serious: No
  Sender: FDA-Public Use
  Company Number: None

PATIENT
  Age: 64 Year
  Sex: Female

DRUGS (1)
  1. SUTENT [Suspect]
     Active Substance: SUNITINIB MALATE
     Route: 048
     Dates: start: 20180514

REACTIONS (4)
  - Neoplasm malignant [None]
  - Renal disorder [None]
  - Urinary tract disorder [None]
  - Pruritus [None]

NARRATIVE: CASE EVENT DATE: 20180514
